FAERS Safety Report 12507594 (Version 1)
Quarter: 2016Q2

REPORT INFORMATION
  Report Type: Spontaneous
  Country: NO (occurrence: NO)
  Receive Date: 20160629
  Receipt Date: 20160629
  Transmission Date: 20160815
  Serious: Yes (Hospitalization)
  Sender: FDA-Public Use
  Company Number: PHHY2016NO085754

PATIENT
  Sex: Female

DRUGS (4)
  1. METRONIDAZOLE. [Concomitant]
     Active Substance: METRONIDAZOLE
     Indication: PRODUCT USED FOR UNKNOWN INDICATION
     Route: 065
  2. TOPOTECAN [Suspect]
     Active Substance: TOPOTECAN\TOPOTECAN HYDROCHLORIDE
     Indication: CERVIX CARCINOMA RECURRENT
     Dosage: UNK
     Route: 065
  3. AVASTIN [Suspect]
     Active Substance: BEVACIZUMAB
     Indication: CERVIX CARCINOMA RECURRENT
     Dosage: 15 MG/M2, UNK
     Route: 065
     Dates: start: 20160412
  4. TAXOL [Suspect]
     Active Substance: PACLITAXEL
     Indication: CERVIX CARCINOMA RECURRENT
     Dosage: UNK
     Route: 065

REACTIONS (1)
  - Pulmonary embolism [Unknown]
